FAERS Safety Report 9924458 (Version 1)
Quarter: 2014Q1

REPORT INFORMATION
  Report Type: Spontaneous
  Country: US (occurrence: None)
  Receive Date: 20140224
  Receipt Date: 20140224
  Transmission Date: 20141002
  Serious: Yes (Other)
  Sender: FDA-Public Use
  Company Number: None

PATIENT
  Age: 24 Year
  Sex: Female
  Weight: 58.97 kg

DRUGS (1)
  1. EPIDUO [Suspect]
     Indication: ACNE
     Dosage: APPLIED TO A SURFACE, USUALLY THE SKIN
     Dates: start: 20140217, end: 20140220

REACTIONS (5)
  - Chemical injury [None]
  - Dry skin [None]
  - Eye swelling [None]
  - Erythema [None]
  - Skin exfoliation [None]
